FAERS Safety Report 5596297-5 (Version None)
Quarter: 2008Q1

REPORT INFORMATION
  Report Type: 
  Country: None (occurrence: None)
  Receive Date: 20080118
  Receipt Date: 20080109
  Transmission Date: 20080703
  Serious: Yes (Death)
  Sender: FDA-Public Use
  Company Number: DE-ABBOTT-07P-062-0431534-00

PATIENT
  Sex: Female

DRUGS (5)
  1. HUMIRA [Suspect]
     Indication: POLYARTHRITIS
     Route: 058
     Dates: start: 20060601, end: 20071007
  2. METOPROLOL TARTRATE [Concomitant]
     Indication: HYPERTENSION
     Dates: end: 20071007
  3. PREDNISONE [Concomitant]
     Indication: DRUG USE FOR UNKNOWN INDICATION
     Route: 048
     Dates: end: 20071007
  4. METHOTREXATE [Concomitant]
     Indication: DRUG USE FOR UNKNOWN INDICATION
     Route: 048
     Dates: start: 20070401, end: 20070901
  5. METHOTREXATE [Concomitant]
     Route: 030
     Dates: start: 20070901

REACTIONS (2)
  - BLOOD CHOLESTEROL INCREASED [None]
  - CARDIAC FAILURE ACUTE [None]
